FAERS Safety Report 18960011 (Version 3)
Quarter: 2021Q2

REPORT INFORMATION
  Report Type: Spontaneous
  Country: US (occurrence: US)
  Receive Date: 20210303
  Receipt Date: 20210610
  Transmission Date: 20210717
  Serious: No
  Sender: FDA-Public Use
  Company Number: US-FDC LIMITED-2107508

PATIENT
  Age: 76 Year
  Sex: Female
  Weight: 60.91 kg

DRUGS (1)
  1. CIPROFLOXACIN. [Suspect]
     Active Substance: CIPROFLOXACIN
     Indication: CATARACT OPERATION
     Route: 047
     Dates: start: 20210214, end: 20210220

REACTIONS (4)
  - Eye pain [Unknown]
  - Eye irritation [Unknown]
  - Instillation site pain [Unknown]
  - Intentional dose omission [Unknown]

NARRATIVE: CASE EVENT DATE: 20210218
